FAERS Safety Report 11324183 (Version 1)
Quarter: 2015Q3

REPORT INFORMATION
  Report Type: Spontaneous
  Country: BR (occurrence: BR)
  Receive Date: 20150730
  Receipt Date: 20150730
  Transmission Date: 20151125
  Serious: Yes (Hospitalization)
  Sender: FDA-Public Use
  Company Number: BR-PFIZER INC-2015010786

PATIENT
  Age: 66 Year
  Sex: Female

DRUGS (2)
  1. SUTENT [Suspect]
     Active Substance: SUNITINIB MALATE
     Indication: GASTROINTESTINAL STROMAL TUMOUR
     Dosage: 37.5 MG (1 TABLET OF STRENGTH 12.5 MG + 1 TABLET OF STRENGTH 25 MG), 1X/DAY, CYCLE 4 PER 2
     Route: 048
     Dates: start: 20140915, end: 2015
  2. CENTRUM A TO ZINC [Concomitant]
     Dosage: UNK
     Dates: start: 2005

REACTIONS (6)
  - Ingrowing nail [Recovered/Resolved]
  - Pain [Not Recovered/Not Resolved]
  - Hordeolum [Recovered/Resolved]
  - Blister [Recovered/Resolved]
  - Gastrointestinal stromal tumour [Not Recovered/Not Resolved]
  - Disease progression [Not Recovered/Not Resolved]

NARRATIVE: CASE EVENT DATE: 2015
